FAERS Safety Report 21210045 (Version 2)
Quarter: 2022Q3

REPORT INFORMATION
  Report Type: Spontaneous
  Country: US (occurrence: US)
  Receive Date: 20220814
  Receipt Date: 20220914
  Transmission Date: 20221027
  Serious: Yes (Hospitalization, Other)
  Sender: FDA-Public Use
  Company Number: US-drreddys-SPO/USA/22/0153331

PATIENT
  Age: 72 Year
  Sex: Male
  Weight: 58.6 kg

DRUGS (3)
  1. HEPARIN SODIUM [Suspect]
     Active Substance: HEPARIN SODIUM
     Indication: Acute myocardial infarction
     Dosage: HEPARIN (PORCINE) 25,000 UNITS IN D5W 250 ML INFUSION (PREMIX); 3.5-23.4 ML/HR, 6-40 UNITS/KG/HR; TI
  2. HEPARIN SODIUM [Suspect]
     Active Substance: HEPARIN SODIUM
     Dosage: HEPARIN (PORCINE) 25,000 UNITS IN D5W 250 ML INFUSION (PREMIX); 3.5-23.4 ML/HR, 6-40 UNITS/KG/HR; TI
  3. TOCILIZUMAB [Concomitant]
     Active Substance: TOCILIZUMAB
     Indication: COVID-19 treatment
     Dosage: DAY 1

REACTIONS (1)
  - Hypoaldosteronism [Recovered/Resolved]
